FAERS Safety Report 6772988-5 (Version None)
Quarter: 2010Q2

REPORT INFORMATION
  Report Type: 
  Country: None (occurrence: None)
  Receive Date: 20100614
  Receipt Date: 20100528
  Transmission Date: 20101027
  Serious: Yes (Death, Hospitalization)
  Sender: FDA-Public Use
  Company Number: 2010002103

PATIENT
  Sex: Female
  Weight: 50.7 kg

DRUGS (3)
  1. ERLOTINIB HYDROCHLORIDE [Suspect]
     Indication: PANCREATIC CARCINOMA
     Dosage: (100 MG,QD), ORAL
     Route: 048
     Dates: start: 20100211, end: 20100522
  2. GEMCITABINE [Suspect]
     Indication: PANCREATIC CARCINOMA
     Dosage: (100 MG/M2, ON DAYS 1, 8, 15, AND 22), INTRAVENOUS
     Route: 042
     Dates: start: 20100211, end: 20100520
  3. IMC-A12 [Suspect]
     Indication: PANCREATIC CARCINOMA
     Dosage: (6 MG/KG, ON DAYS 1, 8, 15, AND 22), INTRAVENOUS
     Route: 042
     Dates: start: 20100211, end: 20100520

REACTIONS (9)
  - ABDOMINAL PAIN [None]
  - BACK PAIN [None]
  - GENERAL PHYSICAL HEALTH DETERIORATION [None]
  - HYPOXIA [None]
  - INTERSTITIAL LUNG DISEASE [None]
  - MALIGNANT NEOPLASM PROGRESSION [None]
  - PANCREATIC CARCINOMA [None]
  - PLEURAL EFFUSION [None]
  - PNEUMONITIS [None]
